FAERS Safety Report 5890225-0 (Version None)
Quarter: 2008Q3

REPORT INFORMATION
  Report Type: 
  Country: None (occurrence: None)
  Receive Date: 20080919
  Receipt Date: 20080908
  Transmission Date: 20090109
  Serious: Yes (Other)
  Sender: FDA-Public Use
  Company Number: US-PFIZER INC-2008076451

PATIENT
  Sex: Female
  Weight: 97.272 kg

DRUGS (9)
  1. CHANTIX [Suspect]
     Indication: SMOKING CESSATION THERAPY
     Route: 048
     Dates: start: 20080903
  2. ALL OTHER THERAPEUTIC PRODUCTS [Concomitant]
  3. NICOTINE [Concomitant]
  4. OXYGEN [Concomitant]
  5. OTHER HYPNOTICS AND SEDATIVES [Concomitant]
  6. DRUG USED IN DIABETES [Concomitant]
  7. HERBAL NOS/MINERALS NOS [Concomitant]
  8. CARDIAC THERAPY [Concomitant]
  9. ALL OTHER THERAPEUTIC PRODUCTS [Concomitant]

REACTIONS (5)
  - AGGRESSION [None]
  - ANGER [None]
  - ANXIETY [None]
  - BLOOD GLUCOSE ABNORMAL [None]
  - FRUSTRATION [None]
